FAERS Safety Report 21497118 (Version 1)
Quarter: 2022Q4

REPORT INFORMATION
  Report Type: Spontaneous
  Country: FR (occurrence: FR)
  Receive Date: 20221023
  Receipt Date: 20221023
  Transmission Date: 20230112
  Serious: Yes (Other)
  Sender: FDA-Public Use
  Company Number: FR-NOVARTISPH-NVSC2022FR237307

PATIENT
  Age: 65 Year
  Sex: Male

DRUGS (5)
  1. TEGRETOL [Suspect]
     Active Substance: CARBAMAZEPINE
     Indication: Bipolar disorder
     Dosage: 400 MG
     Route: 065
     Dates: start: 202110
  2. TEGRETOL [Suspect]
     Active Substance: CARBAMAZEPINE
     Indication: Cyclothymic disorder
     Dosage: 1-2 TABLETS OF 400 MG , QW
     Route: 065
     Dates: start: 202208
  3. TEGRETOL [Suspect]
     Active Substance: CARBAMAZEPINE
     Indication: Depression
  4. TEGRETOL [Suspect]
     Active Substance: CARBAMAZEPINE
     Indication: Euphoric mood
  5. DEPAKOTE [Concomitant]
     Active Substance: DIVALPROEX SODIUM
     Indication: Product used for unknown indication
     Dosage: UNK
     Route: 065

REACTIONS (4)
  - Drug dependence [Unknown]
  - Weight increased [Unknown]
  - Somnolence [Unknown]
  - Intentional product misuse [Unknown]
